FAERS Safety Report 10081056 (Version 1)
Quarter: 2014Q2

REPORT INFORMATION
  Report Type: Spontaneous
  Country: US (occurrence: None)
  Receive Date: 20140415
  Receipt Date: 20140415
  Transmission Date: 20141212
  Serious: Yes (Hospitalization)
  Sender: FDA-Public Use
  Company Number: None

PATIENT
  Age: 66 Year
  Sex: Female

DRUGS (1)
  1. GEMTUZUMAB OZOGAMICIN [Suspect]

REACTIONS (4)
  - Chills [None]
  - Pyrexia [None]
  - Febrile neutropenia [None]
  - Diverticulitis [None]
